FAERS Safety Report 9507891 (Version 1)
Quarter: 2013Q3

REPORT INFORMATION
  Report Type: Spontaneous
  Country: US (occurrence: None)
  Receive Date: 20130906
  Receipt Date: 20130906
  Transmission Date: 20140515
  Serious: Yes (Other)
  Sender: FDA-Public Use
  Company Number: None

PATIENT
  Age: 30 Year
  Sex: Female
  Weight: 45.04 kg

DRUGS (1)
  1. ACTEMRA (TOCILIZUMAB) 200 MG VIAL GENENTECH [Suspect]
     Indication: RENAL TRANSPLANT
     Route: 040
     Dates: start: 20130709

REACTIONS (3)
  - VIIth nerve paralysis [None]
  - Facial pain [None]
  - Syncope [None]
